FAERS Safety Report 8492063-1 (Version None)
Quarter: 2012Q3

REPORT INFORMATION
  Report Type: 
  Country: None (occurrence: None)
  Receive Date: 20120706
  Receipt Date: 20120703
  Transmission Date: 20120928
  Serious: Yes (Death)
  Sender: FDA-Public Use
  Company Number: US-PFIZER INC-2012146254

PATIENT
  Sex: Female

DRUGS (2)
  1. REVATIO [Suspect]
     Indication: LUNG NEOPLASM MALIGNANT
     Dosage: 6-2MG A DAY
     Dates: start: 20120322
  2. RAPAMUNE [Suspect]
     Indication: LUNG DISORDER
     Dosage: 3-2MG A DAY
     Dates: start: 20120322

REACTIONS (1)
  - DEATH [None]
